FAERS Safety Report 17554385 (Version 2)
Quarter: 2020Q1

REPORT INFORMATION
  Report Type: Spontaneous
  Country: JP (occurrence: JP)
  Receive Date: 20200318
  Receipt Date: 20200323
  Transmission Date: 20200409
  Serious: Yes (Other)
  Sender: FDA-Public Use
  Company Number: JP-ALLERGAN-2011690US

PATIENT
  Sex: Female

DRUGS (5)
  1. ESCITALOPRAM OXALATE - BP [Suspect]
     Active Substance: ESCITALOPRAM OXALATE
     Dosage: 10 MG, QD
     Route: 048
     Dates: start: 201910
  2. YOKUKANSAN [Concomitant]
     Active Substance: HERBALS
     Route: 048
  3. DEPAKENE [Concomitant]
     Active Substance: VALPROIC ACID
     Route: 048
  4. ESCITALOPRAM OXALATE - BP [Suspect]
     Active Substance: ESCITALOPRAM OXALATE
     Indication: DEPRESSION
     Dosage: 2.5 MG, QD
     Route: 048
     Dates: start: 202002
  5. AMOBAN [Concomitant]
     Active Substance: ZOPICLONE
     Route: 048

REACTIONS (5)
  - Blepharospasm [Not Recovered/Not Resolved]
  - Underdose [Unknown]
  - Photophobia [Not Recovered/Not Resolved]
  - Wrong technique in product usage process [Unknown]
  - Hypoaesthesia [Not Recovered/Not Resolved]

NARRATIVE: CASE EVENT DATE: 201912
